FAERS Safety Report 8540301-9 (Version None)
Quarter: 2012Q3

REPORT INFORMATION
  Report Type: 
  Country: None (occurrence: None)
  Receive Date: 20120726
  Receipt Date: 20120720
  Transmission Date: 20120928
  Serious: Yes (Death)
  Sender: FDA-Public Use
  Company Number: DE-ROCHE-1064862

PATIENT
  Sex: Female
  Weight: 54.5 kg

DRUGS (11)
  1. MIRCERA [Suspect]
     Indication: NEPHROGENIC ANAEMIA
     Dosage: LAST DOSE PRIOR TO SAE: 05/MAR/2012
     Route: 058
     Dates: start: 20111214
  2. EXFORGE [Concomitant]
     Dosage: DOSE AS REPORTED: 5/80 MG
     Dates: start: 20100612
  3. CARVEDILOL [Concomitant]
     Dates: start: 20100612
  4. RASILEZ [Concomitant]
     Dates: start: 20100612
  5. ACTOS [Concomitant]
     Dates: start: 20101115
  6. PANTOPRAZOLE [Concomitant]
     Dates: start: 20100612
  7. NEPHROTRANS [Concomitant]
     Dates: start: 20100612
  8. TORSEMIDE [Concomitant]
     Dates: start: 20110517
  9. REPAGLINIDE [Concomitant]
     Dates: start: 20100612
  10. PENTAERYTHRITOL TETRANITRATE [Concomitant]
     Dates: start: 20100612
  11. ARANESP [Concomitant]

REACTIONS (3)
  - DEPRESSED LEVEL OF CONSCIOUSNESS [None]
  - HYPOGLYCAEMIA [None]
  - PNEUMONIA [None]
